FAERS Safety Report 5273618-4 (Version None)
Quarter: 2007Q1

REPORT INFORMATION
  Report Type: 
  Country: None (occurrence: None)
  Receive Date: 20070321
  Receipt Date: 20070321
  Transmission Date: 20070707
  Serious: Yes (Hospitalization)
  Sender: FDA-Public Use
  Company Number: None

PATIENT
  Sex: Male
  Weight: 93 kg

DRUGS (2)
  1. ERLOTINIB [Suspect]
  2. XELODA [Suspect]

REACTIONS (3)
  - DIARRHOEA HAEMORRHAGIC [None]
  - HYPOKALAEMIA [None]
  - PYREXIA [None]
